FAERS Safety Report 17167738 (Version 2)
Quarter: 2020Q1

REPORT INFORMATION
  Report Type: Report from Study
  Country: IN (occurrence: IN)
  Receive Date: 20191218
  Receipt Date: 20200121
  Transmission Date: 20200409
  Serious: Yes (Hospitalization)
  Sender: FDA-Public Use
  Company Number: IN-LUPIN PHARMACEUTICALS INC.-2019-06751

PATIENT
  Age: 30 Year
  Sex: Male
  Weight: 59 kg

DRUGS (1)
  1. LEVOTHYROXINE SODIUM. [Suspect]
     Active Substance: LEVOTHYROXINE SODIUM
     Indication: PRODUCT USED FOR UNKNOWN INDICATION
     Dosage: 0.100 MILLIGRAM, SINGLE
     Route: 048
     Dates: start: 20190829, end: 20190829

REACTIONS (2)
  - Road traffic accident [Recovering/Resolving]
  - Multiple injuries [Recovering/Resolving]

NARRATIVE: CASE EVENT DATE: 20190927
